FAERS Safety Report 23584100 (Version 1)
Quarter: 2024Q1

REPORT INFORMATION
  Report Type: Spontaneous
  Country: PT (occurrence: PT)
  Receive Date: 20240301
  Receipt Date: 20240301
  Transmission Date: 20240410
  Serious: Yes (Hospitalization)
  Sender: FDA-Public Use
  Company Number: PT-MYLANLABS-2024M1000414

PATIENT
  Age: 32 Year
  Sex: Female

DRUGS (9)
  1. DIPHENHYDRAMINE [Suspect]
     Active Substance: DIPHENHYDRAMINE
     Indication: Symptomatic treatment
     Dosage: UNK
     Route: 061
  2. HYDROXYZINE [Suspect]
     Active Substance: HYDROXYZINE HYDROCHLORIDE
     Indication: Symptomatic treatment
     Dosage: UNK
     Route: 048
  3. CALAMINE [Suspect]
     Active Substance: CALAMINE\FERRIC OXIDE RED\ZINC OXIDE
     Indication: Symptomatic treatment
     Dosage: UNK
     Route: 061
  4. DALTEPARIN [Suspect]
     Active Substance: DALTEPARIN
     Indication: Pelvic venous thrombosis
     Dosage: 12500 INTERNATIONAL UNIT, ONCE A DAY (6000 INTERNATIONAL UNIT, BID)
     Route: 065
  5. ENOXAPARIN [Suspect]
     Active Substance: ENOXAPARIN
     Indication: Pelvic venous thrombosis
     Dosage: 140 MILLIGRAM, ONCE A DAY (70 MILLIGRAM, BID)
     Route: 058
  6. PREDNISOLONE [Suspect]
     Active Substance: PREDNISOLONE
     Indication: Type IV hypersensitivity reaction
     Dosage: UNK, DOSE REDUCED
     Route: 065
  7. PREDNISOLONE [Suspect]
     Active Substance: PREDNISOLONE
     Dosage: 20 MILLIGRAM
     Route: 065
  8. PREDNISOLONE [Suspect]
     Active Substance: PREDNISOLONE
     Dosage: UNK, LATER CONTINUED AT INITIAL DOSE
     Route: 065
  9. TINZAPARIN [Suspect]
     Active Substance: TINZAPARIN
     Indication: Pelvic venous thrombosis
     Dosage: 1000 INTERNATIONAL UNIT, ONCE A DAY
     Route: 065

REACTIONS (2)
  - Type IV hypersensitivity reaction [Recovered/Resolved]
  - Maternal exposure during pregnancy [Recovered/Resolved]
